FAERS Safety Report 9887642 (Version 2)
Quarter: 2014Q3

REPORT INFORMATION
  Report Type: Spontaneous
  Country: US (occurrence: US)
  Receive Date: 20140211
  Receipt Date: 20140723
  Transmission Date: 20150326
  Serious: Yes (Life-Threatening, Hospitalization, Disabling)
  Sender: FDA-Public Use
  Company Number: US-BAYER-2014-021090

PATIENT
  Age: 43 Year
  Sex: Female

DRUGS (7)
  1. BEYAZ [Suspect]
     Active Substance: DROSPIRENONE\ETHINYL ESTRADIOL\LEVOMEFOLATE CALCIUM
  2. GIANVI [Suspect]
     Active Substance: DROSPIRENONE\ETHINYL ESTRADIOL
  3. YASMIN [Suspect]
     Active Substance: DROSPIRENONE\ETHINYL ESTRADIOL
  4. YAZ [Suspect]
     Active Substance: DROSPIRENONE\ETHINYL ESTRADIOL
  5. OCELLA [Suspect]
     Active Substance: DROSPIRENONE\ETHINYL ESTRADIOL
  6. SAFYRAL [Suspect]
     Active Substance: DROSPIRENONE\ETHINYL ESTRADIOL\LEVOMEFOLATE CALCIUM
  7. ZARAH [Suspect]
     Active Substance: DROSPIRENONE\ETHINYL ESTRADIOL

REACTIONS (12)
  - General physical health deterioration [Recovered/Resolved]
  - Pain [Recovered/Resolved]
  - Renal vascular thrombosis [None]
  - Pulmonary embolism [None]
  - Injury [Recovered/Resolved]
  - Emotional distress [None]
  - Deep vein thrombosis [Recovered/Resolved]
  - Anhedonia [None]
  - Pain [None]
  - Anxiety [None]
  - Vena cava thrombosis [None]
  - Pelvic venous thrombosis [None]

NARRATIVE: CASE EVENT DATE: 20100404
